FAERS Safety Report 18452111 (Version 1)
Quarter: 2020Q4

REPORT INFORMATION
  Report Type: Report from Study
  Country: GB (occurrence: GB)
  Receive Date: 20201102
  Receipt Date: 20201102
  Transmission Date: 20210114
  Serious: Yes (Other)
  Sender: FDA-Public Use
  Company Number: GB-ACCORD-206850

PATIENT
  Age: 65 Year
  Sex: Female

DRUGS (1)
  1. METHOTREXATE. [Suspect]
     Active Substance: METHOTREXATE
     Indication: OCULAR LYMPHOMA
     Dosage: 400 UG/0.1 ML INTRAOCULAR INJECTIONS, INTRAVITREAL MTX 0.4 MG/0.1 ML
     Route: 050

REACTIONS (2)
  - Cystoid macular oedema [Recovering/Resolving]
  - Off label use [Unknown]
